FAERS Safety Report 5202100-5 (Version None)
Quarter: 2007Q1

REPORT INFORMATION
  Report Type: 
  Country: None (occurrence: None)
  Receive Date: 20070109
  Receipt Date: 20070102
  Transmission Date: 20070707
  Serious: Yes (Other)
  Sender: FDA-Public Use
  Company Number: US-JNJFOC-20070100561

PATIENT
  Sex: Female

DRUGS (3)
  1. EXTRA STRENGTH TYLENOL [Suspect]
  2. EXTRA STRENGTH TYLENOL [Suspect]
     Indication: TOOTHACHE
  3. AMOXICILLIN [Suspect]
     Indication: TOOTH INFECTION

REACTIONS (2)
  - EYE SWELLING [None]
  - THROAT TIGHTNESS [None]
